FAERS Safety Report 23871867 (Version 1)
Quarter: 2024Q2

REPORT INFORMATION
  Report Type: Other
  Country: CA (occurrence: None)
  Receive Date: 20240520
  Receipt Date: 20240520
  Transmission Date: 20240716
  Serious: No
  Sender: FDA-Public Use
  Company Number: CA-ROCHE-2970243

PATIENT
  Age: 32 Year
  Sex: Female

DRUGS (3)
  1. OCREVUS [Suspect]
     Active Substance: OCRELIZUMAB
     Indication: Relapsing-remitting multiple sclerosis
     Dosage: 300 MG AT DAY 0 AND 14, THEN 600 MG EVERY 6 MONTH
     Route: 042
     Dates: start: 20190501
  2. TYLENOL [Concomitant]
     Active Substance: ACETAMINOPHEN
  3. SODIUM BICARBONATE\SODIUM CHLORIDE [Concomitant]
     Active Substance: SODIUM BICARBONATE\SODIUM CHLORIDE

REACTIONS (7)
  - Nasopharyngitis [Not Recovered/Not Resolved]
  - Oropharyngeal pain [Recovered/Resolved]
  - Nasal congestion [Not Recovered/Not Resolved]
  - Rhinorrhoea [Not Recovered/Not Resolved]
  - Headache [Recovered/Resolved]
  - COVID-19 [Recovered/Resolved]
  - Brain fog [Recovered/Resolved]

NARRATIVE: CASE EVENT DATE: 20211128
